FAERS Safety Report 13769617 (Version 2)
Quarter: 2017Q3

REPORT INFORMATION
  Report Type: Spontaneous
  Country: FR (occurrence: FR)
  Receive Date: 20170719
  Receipt Date: 20170905
  Transmission Date: 20171127
  Serious: Yes (Other)
  Sender: FDA-Public Use
  Company Number: FR-PFIZER INC-2017310709

PATIENT
  Sex: Female

DRUGS (4)
  1. LYRICA [Suspect]
     Active Substance: PREGABALIN
     Indication: PERIPHERAL SENSORY NEUROPATHY
     Dosage: 225 MG, DAILY (75 MG IN THE MORNING AND 150 MG IN THE EVENING)
     Dates: start: 2006
  2. PREVISCAN [Concomitant]
     Active Substance: FLUINDIONE
     Dosage: UNK
     Dates: start: 2008
  3. MONURAL [Concomitant]
     Dosage: UNK
     Dates: start: 2013
  4. HEMIGOXINE [Concomitant]
     Active Substance: DIGOXIN
     Dosage: UNK
     Dates: start: 2008

REACTIONS (4)
  - Dry skin [Unknown]
  - Dyspnoea [Not Recovered/Not Resolved]
  - Arrhythmia [Not Recovered/Not Resolved]
  - Peripheral venous disease [Unknown]
